FAERS Safety Report 8742402 (Version 3)
Quarter: 2013Q1

REPORT INFORMATION
  Report Type: Report from Study
  Country: JP (occurrence: JP)
  Receive Date: 20120824
  Receipt Date: 20130228
  Transmission Date: 20140127
  Serious: Yes (Hospitalization)
  Sender: FDA-Public Use
  Company Number: JP-PFIZER INC-2012179147

PATIENT
  Age: 42 Year
  Sex: Male
  Weight: 58.3 kg

DRUGS (18)
  1. XALKORI [Suspect]
     Indication: NON-SMALL CELL LUNG CANCER
     Dosage: 250 MG, 2X/DAY
     Route: 048
     Dates: start: 20120621, end: 20120712
  2. NOVAMIN [Suspect]
     Dosage: 5 MG, 3X/DAY
     Route: 048
     Dates: start: 20120627, end: 20120717
  3. NAUZELIN [Suspect]
     Dosage: 10 MG, 3X/DAY
     Route: 048
     Dates: start: 20100726, end: 20120717
  4. PRIMPERAN [Concomitant]
     Dosage: 5 MG, 3X/DAY
     Route: 048
     Dates: start: 20120626, end: 20120717
  5. CALCIUM LACTATE [Concomitant]
     Dosage: 1 G, 3X/DAY
     Route: 048
     Dates: start: 20120626
  6. UNSPECIFIED [Concomitant]
     Dosage: 1 UG, 1X/DAY
     Route: 048
     Dates: start: 20120626
  7. PROMAC [Concomitant]
     Dosage: 75 MG, 2X/DAY
     Route: 048
     Dates: start: 20120706
  8. RANMARK [Concomitant]
     Dosage: 120 MG, MONTHLY
     Route: 058
     Dates: start: 20120628
  9. LOXONIN [Concomitant]
     Dosage: 60 MG, 3X/DAY
     Route: 048
     Dates: start: 20100323
  10. MUCOSTA [Concomitant]
     Dosage: 100 MG, 3X/DAY
     Route: 048
     Dates: start: 20100706, end: 20120705
  11. MAGNESIUM OXIDE [Concomitant]
     Dosage: 1 G, 2X/DAY
     Route: 048
     Dates: start: 20100323
  12. TAKEPRON OD [Concomitant]
     Dosage: 15 MG, 1X/DAY
     Route: 048
     Dates: start: 20100824
  13. PREDONINE [Concomitant]
     Dosage: 5 MG, 1X/DAY
     Route: 048
     Dates: start: 20101013
  14. LYRICA [Concomitant]
     Dosage: 75 MG, 2X/DAY
     Route: 048
     Dates: start: 20120611
  15. OXYCONTIN [Concomitant]
     Dosage: 20 MG, 2X/DAY
     Route: 048
     Dates: start: 20120323
  16. OXINORM [Concomitant]
     Dosage: 5 MG, AS NEEDED
     Route: 048
     Dates: start: 20100323
  17. GENINAX [Concomitant]
     Dosage: 400 MG, 1X/DAY
     Route: 048
     Dates: start: 20120705, end: 20120709
  18. SENNOSIDE A+B [Concomitant]
     Dosage: 24 MG, AS NEEDED
     Route: 048
     Dates: start: 20120629

REACTIONS (2)
  - Akathisia [Recovered/Resolved]
  - Neutropenia [Recovered/Resolved]
